FAERS Safety Report 16211356 (Version 1)
Quarter: 2019Q2

REPORT INFORMATION
  Report Type: Spontaneous
  Country: US (occurrence: US)
  Receive Date: 20190418
  Receipt Date: 20190418
  Transmission Date: 20190711
  Serious: Yes (Other)
  Sender: FDA-Public Use
  Company Number: US-AUROBINDO-AUR-APL-2019-021136

PATIENT

DRUGS (1)
  1. RISPERIDONE. [Suspect]
     Active Substance: RISPERIDONE
     Indication: DEPRESSED MOOD
     Dosage: UNK
     Route: 065

REACTIONS (3)
  - Reduced facial expression [Recovering/Resolving]
  - Bradykinesia [Recovering/Resolving]
  - Cogwheel rigidity [Recovering/Resolving]
